FAERS Safety Report 26079624 (Version 1)
Quarter: 2025Q4

REPORT INFORMATION
  Report Type: Spontaneous
  Country: EU (occurrence: EU)
  Receive Date: 20251123
  Receipt Date: 20251123
  Transmission Date: 20260117
  Serious: Yes (Hospitalization, Other)
  Sender: SANOFI AVENTIS
  Company Number: None

PATIENT
  Age: 70 Year
  Sex: Female
  Weight: 44 kg

DRUGS (1)
  1. ARAVA [Suspect]
     Active Substance: LEFLUNOMIDE
     Indication: Rheumatoid arthritis
     Dosage: 1 DF, QD
     Route: 048
     Dates: start: 20150101, end: 202509

REACTIONS (1)
  - Progressive multifocal leukoencephalopathy [Not Recovered/Not Resolved]

NARRATIVE: CASE EVENT DATE: 20251007
